FAERS Safety Report 21941802 (Version 1)
Quarter: 2023Q1

REPORT INFORMATION
  Report Type: Spontaneous
  Country: US (occurrence: US)
  Receive Date: 20230202
  Receipt Date: 20230202
  Transmission Date: 20230418
  Serious: No
  Sender: FDA-Public Use
  Company Number: US-Rhythm Pharmaceuticals, Inc.-2022RHM000139

PATIENT
  Age: 15 Year
  Sex: Female

DRUGS (6)
  1. IMCIVREE [Suspect]
     Active Substance: SETMELANOTIDE
     Indication: Laurence-Moon-Bardet-Biedl syndrome
     Dosage: PRESCRIBED 2MG (0.2ML) FOR 2 WEEKS, THEN 3MG (0.3ML)
     Route: 058
     Dates: start: 20221023, end: 20221025
  2. IMCIVREE [Suspect]
     Active Substance: SETMELANOTIDE
     Route: 058
     Dates: start: 20221025
  3. PROZAC [Concomitant]
     Active Substance: FLUOXETINE HYDROCHLORIDE
     Indication: Affective disorder
     Route: 065
     Dates: start: 20220906
  4. VICTOZA [Concomitant]
     Active Substance: LIRAGLUTIDE
     Indication: Product used for unknown indication
     Route: 065
  5. HYDROXYZINE [Concomitant]
     Active Substance: HYDROXYZINE HYDROCHLORIDE
     Indication: Product used for unknown indication
     Dosage: 10MG PRN
     Route: 065
     Dates: start: 20220906
  6. TOPIRAMATE [Concomitant]
     Active Substance: TOPIRAMATE
     Indication: Product used for unknown indication
     Route: 065
     Dates: start: 20221011

REACTIONS (4)
  - Mania [Recovered/Resolved]
  - Affect lability [Recovered/Resolved]
  - Feeling hot [Recovered/Resolved]
  - Tearfulness [Recovered/Resolved]

NARRATIVE: CASE EVENT DATE: 20221024
